FAERS Safety Report 14947936 (Version 1)
Quarter: 2018Q2

REPORT INFORMATION
  Report Type: Report from Study
  Country: DE (occurrence: DE)
  Receive Date: 20180529
  Receipt Date: 20180529
  Transmission Date: 20180711
  Serious: Yes (Other)
  Sender: FDA-Public Use
  Company Number: DE-JNJFOC-20180532125

PATIENT
  Sex: Female

DRUGS (2)
  1. REGAINE FRAUEN 2% [Suspect]
     Active Substance: MINOXIDIL
     Indication: PRODUCT USED FOR UNKNOWN INDICATION
     Route: 061
  2. REGAINE FRAUEN 2% [Suspect]
     Active Substance: MINOXIDIL
     Route: 061

REACTIONS (1)
  - Breast cancer [Unknown]
